FAERS Safety Report 9933971 (Version 1)
Quarter: 2014Q1

REPORT INFORMATION
  Report Type: Report from Study
  Country: US (occurrence: US)
  Receive Date: 20140228
  Receipt Date: 20140228
  Transmission Date: 20141002
  Serious: No
  Sender: FDA-Public Use
  Company Number: US-ABBVIE-13P-163-1184124-00

PATIENT
  Age: 49 Year
  Sex: Male
  Weight: 86.26 kg

DRUGS (3)
  1. ANDROGEL [Suspect]
     Indication: BLOOD TESTOSTERONE DECREASED
     Dates: start: 201310, end: 20131226
  2. ANDROGEL [Suspect]
     Dates: start: 20131227
  3. OVER THE COUNTER TESTOSTERONE BOOSTER [Concomitant]
     Indication: BLOOD TESTOSTERONE DECREASED
     Dates: start: 201310, end: 20131226

REACTIONS (2)
  - Erectile dysfunction [Not Recovered/Not Resolved]
  - Blood testosterone increased [Not Recovered/Not Resolved]
